FAERS Safety Report 10501340 (Version 1)
Quarter: 2014Q4

REPORT INFORMATION
  Report Type: Spontaneous
  Country: US (occurrence: US)
  Receive Date: 20141007
  Receipt Date: 20141007
  Transmission Date: 20150528
  Serious: No
  Sender: FDA-Public Use
  Company Number: US-AMGEN INC.-USASP2014074666

PATIENT
  Age: 27 Year
  Sex: Female

DRUGS (1)
  1. ENBREL [Suspect]
     Active Substance: ETANERCEPT
     Indication: PSORIASIS
     Dosage: UNK MG, QWK
     Route: 065
     Dates: start: 20130412

REACTIONS (1)
  - Noninfective gingivitis [Not Recovered/Not Resolved]

NARRATIVE: CASE EVENT DATE: 20140926
